FAERS Safety Report 8150157-4 (Version None)
Quarter: 2012Q1

REPORT INFORMATION
  Report Type: 
  Country: None (occurrence: None)
  Receive Date: 20120220
  Receipt Date: 20120210
  Transmission Date: 20120608
  Serious: No
  Sender: FDA-Public Use
  Company Number: US-BIOGENIDEC-2012BI005515

PATIENT
  Age: 53 Year
  Sex: Female

DRUGS (1)
  1. AVONEX [Suspect]
     Indication: MULTIPLE SCLEROSIS
     Route: 030
     Dates: start: 20071012

REACTIONS (7)
  - SKIN SWELLING [None]
  - CHAPPED LIPS [None]
  - RASH PUSTULAR [None]
  - PRURITUS [None]
  - INFLUENZA LIKE ILLNESS [None]
  - BLISTER [None]
  - OPEN WOUND [None]
